FAERS Safety Report 5285742-0 (Version None)
Quarter: 2007Q1

REPORT INFORMATION
  Report Type: 
  Country: None (occurrence: None)
  Receive Date: 20070126
  Receipt Date: 20050805
  Transmission Date: 20070707
  Serious: No
  Sender: FDA-Public Use
  Company Number: 2006CT001172

PATIENT
  Age: 72 Year
  Sex: Female
  Weight: 92 kg

DRUGS (18)
  1. VENTAVIS [Suspect]
     Indication: PULMONARY HYPERTENSION
     Dosage: 5 UG;4XD;INH
     Route: 055
     Dates: start: 20050706, end: 20050805
  2. ALBUTEROL [Concomitant]
  3. ALDACTONE [Concomitant]
  4. ASPIRIN [Concomitant]
  5. CENTRUM SILVER [Concomitant]
  6. COLACE [Concomitant]
  7. WARFARIN SODIUM [Concomitant]
  8. DIGOXIN [Concomitant]
  9. DILTIAZEM [Concomitant]
  10. LASIX [Concomitant]
  11. MONOPRIL [Concomitant]
  12. OXYGEN [Concomitant]
  13. PRAVACHOL [Concomitant]
  14. PREDNISONE TAB [Concomitant]
  15. TRACLEER [Concomitant]
  16. TYLENOL W/CODEIN NO. 3 [Concomitant]
  17. VASOTEC [Concomitant]
  18. PREVACID [Concomitant]

REACTIONS (2)
  - ANOREXIA [None]
  - NAUSEA [None]
